FAERS Safety Report 4911694-6 (Version None)
Quarter: 2006Q1

REPORT INFORMATION
  Report Type: 
  Country: None (occurrence: None)
  Receive Date: 20060213
  Receipt Date: 20060202
  Transmission Date: 20060701
  Serious: Yes (Other)
  Sender: FDA-Public Use
  Company Number: 2006017862

PATIENT
  Age: 48 Year
  Sex: Female

DRUGS (6)
  1. LYRICA [Suspect]
     Indication: ILL-DEFINED DISORDER
     Dosage: 150 MG (75 MG, 2 IN 1 D), ORAL
     Route: 048
     Dates: start: 20060105
  2. OXYCODONE HCL [Concomitant]
  3. ATIVAN [Concomitant]
  4. PEPCID [Concomitant]
  5. TOPAMAX [Concomitant]
  6. CELEXA [Concomitant]

REACTIONS (1)
  - HYPOAESTHESIA [None]
